FAERS Safety Report 21680828 (Version 2)
Quarter: 2022Q4

REPORT INFORMATION
  Report Type: Report from Study
  Country: CN (occurrence: CN)
  Receive Date: 20221205
  Receipt Date: 20221208
  Transmission Date: 20230113
  Serious: Yes (Life-Threatening, Hospitalization)
  Sender: FDA-Public Use
  Company Number: CN-MYLANLABS-2022M1134146

PATIENT
  Age: 7 Year
  Sex: Female

DRUGS (3)
  1. AMLODIPINE [Interacting]
     Active Substance: AMLODIPINE BESYLATE
     Indication: Juvenile idiopathic arthritis
     Dosage: UNK
     Route: 065
  2. VORICONAZOLE [Interacting]
     Active Substance: VORICONAZOLE
     Indication: Juvenile idiopathic arthritis
     Dosage: UNK
     Route: 065
  3. NIFEDIPINE [Interacting]
     Active Substance: NIFEDIPINE
     Indication: Juvenile idiopathic arthritis
     Dosage: UNK
     Route: 065

REACTIONS (3)
  - Drug interaction [Unknown]
  - Neutropenia [Unknown]
  - Leukopenia [Unknown]
